FAERS Safety Report 7147592-X (Version None)
Quarter: 2010Q4

REPORT INFORMATION
  Report Type: 
  Country: None (occurrence: None)
  Receive Date: 20101209
  Receipt Date: 20101206
  Transmission Date: 20110411
  Serious: No
  Sender: FDA-Public Use
  Company Number: US-BIOGENIDEC-2010BI040836

PATIENT
  Sex: Female

DRUGS (1)
  1. TYSABRI [Suspect]
     Indication: MULTIPLE SCLEROSIS
     Route: 042
     Dates: start: 20080409

REACTIONS (4)
  - BALANCE DISORDER [None]
  - CARPAL TUNNEL SYNDROME [None]
  - FATIGUE [None]
  - HYPOAESTHESIA [None]
